FAERS Safety Report 6033943-6 (Version None)
Quarter: 2009Q1

REPORT INFORMATION
  Report Type: 
  Country: None (occurrence: None)
  Receive Date: 20090112
  Receipt Date: 20090102
  Transmission Date: 20090719
  Serious: Yes (Hospitalization, Other)
  Sender: FDA-Public Use
  Company Number: PHHY2008GB33011

PATIENT
  Sex: Female

DRUGS (1)
  1. CLOZARIL [Suspect]
     Dosage: UNK
     Route: 048
     Dates: start: 20081016

REACTIONS (7)
  - ABDOMINAL PAIN [None]
  - ATONIC URINARY BLADDER [None]
  - GALLBLADDER DISORDER [None]
  - HAEMOGLOBIN DECREASED [None]
  - LEARNING DISORDER [None]
  - OVERWEIGHT [None]
  - PLATELET COUNT INCREASED [None]
